FAERS Safety Report 18710622 (Version 2)
Quarter: 2021Q1

REPORT INFORMATION
  Report Type: Spontaneous
  Country: SE (occurrence: US)
  Receive Date: 20210107
  Receipt Date: 20210215
  Transmission Date: 20210419
  Serious: Yes (Other)
  Sender: FDA-Public Use
  Company Number: US-RECORDATI RARE DISEASES-2104046

PATIENT
  Age: 6 Decade
  Sex: Female

DRUGS (5)
  1. SIGNIFOR [Suspect]
     Active Substance: PASIREOTIDE DIASPARTATE
     Indication: PANCREATIC NEUROENDOCRINE TUMOUR METASTATIC
  2. EVEROLIMUS. [Suspect]
     Active Substance: EVEROLIMUS
  3. STREPTOZOCIN [Concomitant]
     Active Substance: STREPTOZOCIN
  4. 5?FLUOROURACIL [FLUOROURACIL] [Concomitant]
     Active Substance: FLUOROURACIL
  5. LANREOTIDE [Concomitant]
     Active Substance: LANREOTIDE

REACTIONS (2)
  - Diabetes mellitus [Recovered/Resolved]
  - Weight decreased [Unknown]
